FAERS Safety Report 12051068 (Version 1)
Quarter: 2016Q1

REPORT INFORMATION
  Report Type: Report from Study
  Country: FR (occurrence: FR)
  Receive Date: 20160209
  Receipt Date: 20160209
  Transmission Date: 20160526
  Serious: Yes (Hospitalization)
  Sender: FDA-Public Use
  Company Number: FR-TEVA-632708ISR

PATIENT
  Age: 48 Year
  Sex: Male

DRUGS (5)
  1. GENTALLINE [Concomitant]
     Active Substance: GENTAMICIN SULFATE
     Indication: FEBRILE BONE MARROW APLASIA
     Dosage: 160 MILLIGRAM DAILY;
     Route: 042
     Dates: start: 20071120, end: 20071123
  2. TAZOCILLINE [Concomitant]
     Active Substance: PIPERACILLIN SODIUM\TAZOBACTAM SODIUM
     Indication: FEBRILE BONE MARROW APLASIA
     Dosage: 16 GRAM DAILY;
     Route: 042
     Dates: start: 20071120, end: 20071124
  3. XANAX [Concomitant]
     Active Substance: ALPRAZOLAM
     Indication: ANXIETY
     Dosage: .25 MILLIGRAM DAILY;
     Route: 048
     Dates: start: 20071114, end: 20071129
  4. TRISENOX [Suspect]
     Active Substance: ARSENIC TRIOXIDE
     Indication: ACUTE PROMYELOCYTIC LEUKAEMIA
     Dosage: 5 DAYS PER WEEK
     Dates: start: 20071111, end: 20071127
  5. PLITICAN [Concomitant]
     Active Substance: ALIZAPRIDE HYDROCHLORIDE
     Indication: VOMITING
     Dosage: 2 DOSAGE FORMS DAILY;
     Route: 042
     Dates: start: 20071111, end: 20071129

REACTIONS (4)
  - Depressed level of consciousness [Recovered/Resolved]
  - Diarrhoea [Recovered/Resolved]
  - Respiratory alkalosis [Recovered/Resolved]
  - Pyrexia [Recovered/Resolved]

NARRATIVE: CASE EVENT DATE: 20071120
